FAERS Safety Report 4803460-7 (Version None)
Quarter: 2005Q4

REPORT INFORMATION
  Report Type: 
  Country: None (occurrence: None)
  Receive Date: 20051019
  Receipt Date: 20051014
  Transmission Date: 20060501
  Serious: Yes (Congenital Anomaly)
  Sender: FDA-Public Use
  Company Number: PHFR2005GB03415

PATIENT

DRUGS (2)
  1. TOPAMAX [Suspect]
     Route: 064
  2. CARBAMAZEPINE [Suspect]
     Route: 064

REACTIONS (1)
  - HAEMANGIOMA [None]
